FAERS Safety Report 15895650 (Version 3)
Quarter: 2019Q1

REPORT INFORMATION
  Report Type: Spontaneous
  Country: US (occurrence: FR)
  Receive Date: 20190131
  Receipt Date: 20190213
  Transmission Date: 20190417
  Serious: Yes (Hospitalization)
  Sender: FDA-Public Use
  Company Number: US-ARRAY-2019-05029

PATIENT
  Weight: 60 kg

DRUGS (3)
  1. BRAFTOVI [Suspect]
     Active Substance: ENCORAFENIB
     Indication: MELANOMA RECURRENT
     Dosage: 450 MG, QD
     Route: 048
     Dates: start: 20181007, end: 20181103
  2. PEMBROLIZUMAB. [Suspect]
     Active Substance: PEMBROLIZUMAB
     Indication: MELANOMA RECURRENT
     Dosage: UNK
     Route: 042
     Dates: start: 201802, end: 201808
  3. MEKTOVI [Suspect]
     Active Substance: BINIMETINIB
     Indication: MELANOMA RECURRENT
     Dosage: 135 MG, QD
     Route: 048
     Dates: start: 20181007, end: 20181103

REACTIONS (4)
  - Off label use [Unknown]
  - Colitis [Recovering/Resolving]
  - Diarrhoea [None]
  - Off label use [None]

NARRATIVE: CASE EVENT DATE: 20181103
